FAERS Safety Report 6057006-9 (Version None)
Quarter: 2009Q1

REPORT INFORMATION
  Report Type: 
  Country: None (occurrence: None)
  Receive Date: 20090127
  Receipt Date: 20090127
  Transmission Date: 20090719
  Serious: No
  Sender: FDA-Public Use
  Company Number: None

PATIENT
  Age: 86 Year
  Sex: Female
  Weight: 79.38 kg

DRUGS (1)
  1. VANCOMYCIN [Suspect]
     Indication: CELLULITIS
     Dosage: 1 GM EVERY 24 HOURS OTHER
     Route: 050
     Dates: start: 20090105, end: 20090120

REACTIONS (1)
  - DRUG HYPERSENSITIVITY [None]
